FAERS Safety Report 26086286 (Version 1)
Quarter: 2025Q4

REPORT INFORMATION
  Report Type: Spontaneous
  Country: CN (occurrence: CN)
  Receive Date: 20251125
  Receipt Date: 20251125
  Transmission Date: 20260117
  Serious: Yes (Other)
  Sender: ROCHE
  Company Number: CN-ROCHE-10000438126

PATIENT
  Age: 55 Year
  Sex: Male

DRUGS (3)
  1. GAZYVA [Suspect]
     Active Substance: OBINUTUZUMAB
     Indication: Glomerulonephritis membranous
     Route: 042
     Dates: start: 20251105, end: 20251105
  2. DIPHENHYDRAMINE [Concomitant]
     Active Substance: DIPHENHYDRAMINE
     Route: 030
  3. IBUPROFEN [Concomitant]
     Active Substance: IBUPROFEN
     Dosage: 0.2G PO FOR PREVENTIVE ADMINISTRATION.

REACTIONS (5)
  - Chills [Recovering/Resolving]
  - Off label use [Unknown]
  - Pyrexia [Recovering/Resolving]
  - Heart rate increased [Recovering/Resolving]
  - Hyperhidrosis [Recovering/Resolving]

NARRATIVE: CASE EVENT DATE: 20251105
